FAERS Safety Report 5298352-6 (Version None)
Quarter: 2007Q2

REPORT INFORMATION
  Report Type: 
  Country: None (occurrence: None)
  Receive Date: 20070416
  Receipt Date: 20070406
  Transmission Date: 20071010
  Serious: Yes (Other)
  Sender: FDA-Public Use
  Company Number: US-PFIZER INC-2007018227

PATIENT
  Sex: Female
  Weight: 37.2 kg

DRUGS (12)
  1. LYRICA [Suspect]
     Indication: POST HERPETIC NEURALGIA
     Route: 048
     Dates: start: 20070301, end: 20070305
  2. LIDOCAINE [Concomitant]
  3. HYZAAR [Concomitant]
  4. INDERAL [Concomitant]
  5. MAGNESIUM [Concomitant]
  6. PREVACID [Concomitant]
  7. PEPCID [Concomitant]
  8. FOSAMAX [Concomitant]
  9. TOPAMAX [Concomitant]
  10. SERTRALINE [Concomitant]
  11. CARDIZEM [Concomitant]
  12. LIDODERM [Concomitant]

REACTIONS (4)
  - DRUG INTOLERANCE [None]
  - MUSCLE DISORDER [None]
  - NERVOUSNESS [None]
  - TREMOR [None]
